FAERS Safety Report 20100299 (Version 2)
Quarter: 2022Q1

REPORT INFORMATION
  Report Type: Spontaneous
  Country: DE (occurrence: DE)
  Receive Date: 20211123
  Receipt Date: 20220106
  Transmission Date: 20220424
  Serious: Yes (Other)
  Sender: FDA-Public Use
  Company Number: DE-009507513-2111DEU001498

PATIENT
  Sex: Female

DRUGS (12)
  1. DOCETAXEL [Suspect]
     Active Substance: DOCETAXEL
     Indication: Lung adenocarcinoma
     Dosage: 75 MILLIGRAM/SQ. METER
     Route: 065
  2. DOCETAXEL [Suspect]
     Active Substance: DOCETAXEL
     Indication: Product used for unknown indication
     Dosage: 75 MILLIGRAM/SQ. METER
     Route: 065
  3. CARBOPLATIN [Suspect]
     Active Substance: CARBOPLATIN
     Indication: Lung adenocarcinoma
     Dosage: UNK (CYCLICAL)
     Route: 065
  4. DENOSUMAB [Suspect]
     Active Substance: DENOSUMAB
     Indication: Lung adenocarcinoma
     Dosage: UNK
     Route: 065
  5. NINTEDANIB [Suspect]
     Active Substance: NINTEDANIB
     Indication: Lung adenocarcinoma
     Dosage: 300 MILLIGRAM, ONCE A DAY
     Route: 065
  6. NINTEDANIB [Suspect]
     Active Substance: NINTEDANIB
     Indication: Product used for unknown indication
     Dosage: UNK
     Route: 065
  7. NINTEDANIB [Suspect]
     Active Substance: NINTEDANIB
     Dosage: 400 MILLIGRAM, ONCE A DAY
     Route: 065
  8. PEMETREXED [Suspect]
     Active Substance: PEMETREXED
     Indication: Lung adenocarcinoma
     Dosage: UNK (1ST LINE, 4 CYCLES)
     Route: 065
  9. PEMETREXED [Suspect]
     Active Substance: PEMETREXED
     Dosage: UNK
  10. PEMBROLIZUMAB [Suspect]
     Active Substance: PEMBROLIZUMAB
     Indication: Lung adenocarcinoma
     Dosage: UNK (1ST LINE, 4 CYCLES)
     Route: 065
  11. SELPERCATINIB [Suspect]
     Active Substance: SELPERCATINIB
     Indication: Lung adenocarcinoma
     Dosage: 320 MILLIGRAM, ONCE A DAY
     Route: 065
  12. DEXAMETHASONE [Concomitant]
     Active Substance: DEXAMETHASONE
     Indication: Product used for unknown indication
     Dosage: 4 MILLIGRAM
     Route: 065

REACTIONS (4)
  - Diarrhoea [Unknown]
  - Malignant neoplasm progression [Unknown]
  - Therapy partial responder [Unknown]
  - Nausea [Unknown]

NARRATIVE: CASE EVENT DATE: 20190601
